FAERS Safety Report 13106960 (Version 4)
Quarter: 2017Q1

REPORT INFORMATION
  Report Type: Spontaneous
  Country: US (occurrence: US)
  Receive Date: 20170111
  Receipt Date: 20170306
  Transmission Date: 20170428
  Serious: Yes (Hospitalization, Other)
  Sender: FDA-Public Use
  Company Number: US-IMPAX LABORATORIES, INC-2016-IPXL-02442

PATIENT
  Age: 68 Year
  Sex: Male

DRUGS (3)
  1. RYTARY [Suspect]
     Active Substance: CARBIDOPA\LEVODOPA
     Dosage: 23.75/95MG 1 CAPSULE, TID
     Route: 048
     Dates: start: 2016, end: 20161220
  2. RYTARY [Suspect]
     Active Substance: CARBIDOPA\LEVODOPA
     Dosage: 23.75/95MG 2 CAPSULES, TID
     Route: 048
     Dates: start: 2016, end: 2016
  3. RYTARY [Suspect]
     Active Substance: CARBIDOPA\LEVODOPA
     Indication: PARKINSON^S DISEASE
     Dosage: 23.75/95MG 1 CAPSULE, TID
     Route: 048
     Dates: start: 2016, end: 2016

REACTIONS (6)
  - General physical health deterioration [Unknown]
  - Feeling abnormal [Recovering/Resolving]
  - Cerebrovascular accident [Unknown]
  - Hospitalisation [Unknown]
  - Dysphagia [Unknown]
  - Somnolence [Recovering/Resolving]

NARRATIVE: CASE EVENT DATE: 201612
